FAERS Safety Report 8961671 (Version 28)
Quarter: 2016Q4

REPORT INFORMATION
  Report Type: Report from Study
  Country: CA (occurrence: CA)
  Receive Date: 20121212
  Receipt Date: 20161107
  Transmission Date: 20170207
  Serious: Yes (Other)
  Sender: FDA-Public Use
  Company Number: CA-ROCHE-1115898

PATIENT
  Age: 73 Year
  Sex: Female
  Weight: 96 kg

DRUGS (30)
  1. TRIAZIDE (TRICHLORMETHIAZIDE) [Concomitant]
     Active Substance: TRICHLORMETHIAZIDE
  2. VITAMIN C [Concomitant]
     Active Substance: ASCORBIC ACID
  3. ACTEMRA [Suspect]
     Active Substance: TOCILIZUMAB
     Route: 042
     Dates: start: 20160803
  4. ATENOLOL. [Concomitant]
     Active Substance: ATENOLOL
  5. LYSINE [Concomitant]
     Active Substance: LYSINE
  6. TRAMADOL. [Concomitant]
     Active Substance: TRAMADOL
  7. PSYLLIUM [Suspect]
     Active Substance: PLANTAGO SEED
     Indication: PRODUCT USED FOR UNKNOWN INDICATION
     Route: 065
  8. CRESTOR [Concomitant]
     Active Substance: ROSUVASTATIN CALCIUM
  9. VITAMIN E [Concomitant]
     Active Substance: .ALPHA.-TOCOPHEROL
  10. ACTEMRA [Suspect]
     Active Substance: TOCILIZUMAB
     Route: 042
     Dates: start: 20160902
  11. BROMELAIN [Concomitant]
     Active Substance: BROMELAINS
  12. Q10 [Concomitant]
  13. ACTEMRA [Suspect]
     Active Substance: TOCILIZUMAB
     Route: 042
     Dates: start: 20150311
  14. ACTEMRA [Suspect]
     Active Substance: TOCILIZUMAB
     Route: 042
     Dates: start: 20150408
  15. ACTEMRA [Suspect]
     Active Substance: TOCILIZUMAB
     Route: 042
     Dates: start: 20160628
  16. CRESTOR [Suspect]
     Active Substance: ROSUVASTATIN CALCIUM
     Indication: PRODUCT USED FOR UNKNOWN INDICATION
     Route: 065
  17. LORAZEPAM. [Concomitant]
     Active Substance: LORAZEPAM
     Route: 065
  18. VOLTAREN [Concomitant]
     Active Substance: DICLOFENAC SODIUM
  19. AMLODIPINE BESYLATE. [Concomitant]
     Active Substance: AMLODIPINE BESYLATE
  20. VITAMIN B12 [Concomitant]
     Active Substance: CYANOCOBALAMIN
  21. NAPROXEN. [Concomitant]
     Active Substance: NAPROXEN
  22. ACTEMRA [Suspect]
     Active Substance: TOCILIZUMAB
     Indication: RHEUMATOID ARTHRITIS
     Dosage: LAST INFUSION ON 05/MAR/2014
     Route: 042
     Dates: start: 20120516
  23. ACTEMRA [Suspect]
     Active Substance: TOCILIZUMAB
     Route: 042
     Dates: start: 20160531
  24. FISH OIL [Concomitant]
     Active Substance: FISH OIL
  25. FOLIC ACID. [Concomitant]
     Active Substance: FOLIC ACID
  26. HYDROCHLOROTHIAZIDE/TRIAMTERENE [Concomitant]
     Active Substance: HYDROCHLOROTHIAZIDE\TRIAMTERENE
  27. ACTEMRA [Suspect]
     Active Substance: TOCILIZUMAB
     Route: 042
     Dates: start: 20150506
  28. PREDNISONE. [Concomitant]
     Active Substance: PREDNISONE
  29. VITAMIN E [Concomitant]
     Active Substance: .ALPHA.-TOCOPHEROL
  30. LOSARTAN. [Concomitant]
     Active Substance: LOSARTAN

REACTIONS (59)
  - Road traffic accident [Unknown]
  - Blood cholesterol increased [Not Recovered/Not Resolved]
  - Pain [Unknown]
  - Scar [Not Recovered/Not Resolved]
  - Ligament sprain [Unknown]
  - Medication error [Unknown]
  - Dyspnoea [Not Recovered/Not Resolved]
  - Blood pressure diastolic abnormal [Unknown]
  - Liver injury [Unknown]
  - Dental caries [Unknown]
  - Hepatic steatosis [Unknown]
  - Pain in extremity [Unknown]
  - Muscle tightness [Unknown]
  - Malaise [Unknown]
  - Weight increased [Unknown]
  - Renal pain [Unknown]
  - Dry mouth [Not Recovered/Not Resolved]
  - Neck pain [Unknown]
  - Heart rate decreased [Unknown]
  - Fall [Unknown]
  - Gastrointestinal disorder [Unknown]
  - Gastrointestinal disorder [Not Recovered/Not Resolved]
  - Hepatic pain [Unknown]
  - Faeces pale [Unknown]
  - Tooth infection [Unknown]
  - Cataract [Recovered/Resolved]
  - Headache [Recovering/Resolving]
  - Weight decreased [Unknown]
  - Urinary tract infection [Unknown]
  - Cough [Not Recovered/Not Resolved]
  - Gastrointestinal pain [Not Recovered/Not Resolved]
  - Abdominal pain upper [Not Recovered/Not Resolved]
  - Oxygen saturation decreased [Unknown]
  - Limb injury [Recovering/Resolving]
  - Diverticulitis [Recovered/Resolved]
  - Osteoarthritis [Unknown]
  - Cystitis [Recovered/Resolved]
  - Blood pressure increased [Recovering/Resolving]
  - Blood pressure fluctuation [Unknown]
  - Tooth disorder [Recovered/Resolved]
  - Peripheral swelling [Unknown]
  - Musculoskeletal pain [Unknown]
  - Fungal infection [Recovered/Resolved]
  - Abdominal pain [Not Recovered/Not Resolved]
  - Diarrhoea [Not Recovered/Not Resolved]
  - Arthralgia [Unknown]
  - Nausea [Recovered/Resolved]
  - Rheumatoid arthritis [Not Recovered/Not Resolved]
  - Infusion related reaction [Unknown]
  - Oxygen saturation decreased [Unknown]
  - Heart rate decreased [Unknown]
  - Blood pressure systolic increased [Unknown]
  - Back pain [Unknown]
  - Balance disorder [Recovered/Resolved]
  - Haematochezia [Recovered/Resolved]
  - Oedema [Recovering/Resolving]
  - Drug ineffective [Unknown]
  - Heart rate decreased [Unknown]
  - Incision site infection [Recovered/Resolved]

NARRATIVE: CASE EVENT DATE: 20120520
